FAERS Safety Report 8286802-2 (Version None)
Quarter: 2012Q2

REPORT INFORMATION
  Report Type: 
  Country: None (occurrence: None)
  Receive Date: 20120416
  Receipt Date: 20120414
  Transmission Date: 20120825
  Serious: No
  Sender: FDA-Public Use
  Company Number: US-PFIZER INC-2012092873

PATIENT
  Sex: Female
  Weight: 95.238 kg

DRUGS (1)
  1. GEODON [Suspect]
     Indication: SCHIZOPHRENIA
     Dosage: 20 MG, DAILY
     Dates: start: 20120301, end: 20120301

REACTIONS (10)
  - VOMITING [None]
  - ASTHENIA [None]
  - DEPRESSED MOOD [None]
  - DIARRHOEA [None]
  - DIZZINESS [None]
  - ABDOMINAL DISCOMFORT [None]
  - DRUG INEFFECTIVE [None]
  - DECREASED APPETITE [None]
  - PYREXIA [None]
  - INFLUENZA [None]
